APPROVED DRUG PRODUCT: CALCITRIOL
Active Ingredient: CALCITRIOL
Strength: 0.5MCG
Dosage Form/Route: CAPSULE;ORAL
Application: A091356 | Product #002 | TE Code: AB
Applicant: ONESOURCE SPECIALTY PTE LTD
Approved: Dec 12, 2014 | RLD: No | RS: Yes | Type: RX